FAERS Safety Report 13038636 (Version 1)
Quarter: 2016Q4

REPORT INFORMATION
  Report Type: Report from Study
  Country: None (occurrence: US)
  Receive Date: 20161219
  Receipt Date: 20161219
  Transmission Date: 20170207
  Serious: Yes (Hospitalization)
  Sender: FDA-Public Use
  Company Number: US-ABBVIE-16K-163-1799542-00

PATIENT
  Sex: Male

DRUGS (1)
  1. HUMIRA [Suspect]
     Active Substance: ADALIMUMAB
     Indication: RHEUMATOID ARTHRITIS
     Route: 058
     Dates: end: 2016

REACTIONS (8)
  - Gallbladder non-functioning [Unknown]
  - Unevaluable event [Recovering/Resolving]
  - Pulmonary mass [Unknown]
  - Pleural effusion [Unknown]
  - Clostridium difficile infection [Unknown]
  - Musculoskeletal discomfort [Recovering/Resolving]
  - Hepatic lesion [Unknown]
  - Arthropod bite [Recovering/Resolving]

NARRATIVE: CASE EVENT DATE: 2016
